FAERS Safety Report 4407638-6 (Version None)
Quarter: 2004Q3

REPORT INFORMATION
  Report Type: 
  Country: None (occurrence: None)
  Receive Date: 20040721
  Receipt Date: 20040707
  Transmission Date: 20050211
  Serious: Yes (Other)
  Sender: FDA-Public Use
  Company Number: 04-262-0905

PATIENT
  Sex: Male
  Weight: 67.5 kg

DRUGS (5)
  1. VECURONIUM BROMIDE 10 MG, BEN VENUE LABS [Suspect]
     Indication: CRANIOTOMY
     Dosage: 12MG IV BOLUS
     Dates: end: 20040707
  2. HYDROCHLOROTHIAZIDE [Concomitant]
  3. ELAVIL [Concomitant]
  4. ASPIRIN [Concomitant]
  5. VIOXX [Concomitant]

REACTIONS (2)
  - ANAESTHETIC COMPLICATION [None]
  - DRUG INEFFECTIVE [None]
